FAERS Safety Report 13129135 (Version 1)
Quarter: 2017Q1

REPORT INFORMATION
  Report Type: Spontaneous
  Country: US (occurrence: US)
  Receive Date: 20170118
  Receipt Date: 20170118
  Transmission Date: 20170428
  Serious: Yes (Other)
  Sender: FDA-Public Use
  Company Number: None

PATIENT
  Age: 72 Year
  Sex: Female
  Weight: 58.97 kg

DRUGS (14)
  1. JANUMET [Concomitant]
     Active Substance: METFORMIN HYDROCHLORIDE\SITAGLIPTIN PHOSPHATE
  2. LEVOTHYROXINE. [Concomitant]
     Active Substance: LEVOTHYROXINE
  3. OPTIFERRIN C (IRONBYSGLYCINATE) [Concomitant]
  4. GINKO BILOBA [Concomitant]
     Active Substance: GINKGO
  5. LIOTHYRONINE [Suspect]
     Active Substance: LIOTHYRONINE
     Indication: HYPOTHYROIDISM
     Dosage: FREQUENCY - 1XDAY 10-26-2016 - 11/4/2016?2X DAY 11/5/16 - 12/6/2016?CHANGED BY PRACTITIONER
     Route: 048
     Dates: start: 20161026, end: 20161104
  6. VITAMIN D3 [Concomitant]
     Active Substance: CHOLECALCIFEROL
  7. O.N.E. MULTIVITAMIN W/METAFOLIN L-5-MTHF AND SUSTAINED RELEASE COQ10 [Concomitant]
  8. B COMPLEX PLUS [Concomitant]
  9. SELENIUM [Concomitant]
     Active Substance: SELENIUM
  10. METFORMIN [Concomitant]
     Active Substance: METFORMIN HYDROCHLORIDE
  11. SUPER OMEGA EPA (FISH OIL) [Concomitant]
  12. LIOTHYRONINE [Suspect]
     Active Substance: LIOTHYRONINE
     Indication: TRI-IODOTHYRONINE DECREASED
     Dosage: FREQUENCY - 1XDAY 10-26-2016 - 11/4/2016?2X DAY 11/5/16 - 12/6/2016?CHANGED BY PRACTITIONER
     Route: 048
     Dates: start: 20161026, end: 20161104
  13. GLYBURIDE. [Concomitant]
     Active Substance: GLYBURIDE
  14. NAC CN-ACETYLCYSTEIN [Concomitant]

REACTIONS (16)
  - Blunted affect [None]
  - Blood thyroid stimulating hormone decreased [None]
  - Depression [None]
  - Thyroxine decreased [None]
  - Balance disorder [None]
  - Fatigue [None]
  - Dysarthria [None]
  - Depressed level of consciousness [None]
  - Feeling drunk [None]
  - Asthenia [None]
  - Tri-iodothyronine increased [None]
  - Slow speech [None]
  - Dizziness [None]
  - Blood glucose increased [None]
  - Adrenal disorder [None]
  - Bradyphrenia [None]

NARRATIVE: CASE EVENT DATE: 201610
